FAERS Safety Report 13798085 (Version 2)
Quarter: 2017Q4

REPORT INFORMATION
  Report Type: Spontaneous
  Country: US (occurrence: US)
  Receive Date: 20170727
  Receipt Date: 20171128
  Transmission Date: 20180320
  Serious: No
  Sender: FDA-Public Use
  Company Number: US-PFIZER INC-2017322972

PATIENT
  Age: 37 Year
  Sex: Male

DRUGS (1)
  1. EUCRISA [Suspect]
     Active Substance: CRISABOROLE
     Indication: ECZEMA
     Dosage: UNK, 2X/DAY(MORNING AND EVENING) ON AFFECTED AREAS
     Route: 061
     Dates: start: 20170719, end: 20170723

REACTIONS (1)
  - Drug ineffective [Unknown]
